FAERS Safety Report 16917484 (Version 1)
Quarter: 2019Q4

REPORT INFORMATION
  Report Type: Spontaneous
  Country: CA (occurrence: CA)
  Receive Date: 20191015
  Receipt Date: 20191015
  Transmission Date: 20200122
  Serious: Yes (Other)
  Sender: FDA-Public Use
  Company Number: CA-TEVA-2019-CA-1121173

PATIENT
  Age: 75 Year
  Sex: Male

DRUGS (3)
  1. PACLITAXEL. [Suspect]
     Active Substance: PACLITAXEL
     Indication: NON-SMALL CELL LUNG CANCER STAGE III
     Dosage: LIQUID INTRAVENOUS
     Route: 065
  2. CARBOPLATIN. [Suspect]
     Active Substance: CARBOPLATIN
     Indication: NON-SMALL CELL LUNG CANCER STAGE III
     Dosage: SOLUTION INTRAVENOUS
     Route: 065
  3. GEMCITABINE HYDROCHLORIDE. [Suspect]
     Active Substance: GEMCITABINE HYDROCHLORIDE
     Indication: NON-SMALL CELL LUNG CANCER STAGE III
     Route: 065

REACTIONS (3)
  - Delirium [Recovering/Resolving]
  - Cognitive disorder [Recovering/Resolving]
  - Memory impairment [Recovering/Resolving]
